FAERS Safety Report 19177879 (Version 1)
Quarter: 2021Q2

REPORT INFORMATION
  Report Type: Spontaneous
  Country: US (occurrence: US)
  Receive Date: 20210426
  Receipt Date: 20210426
  Transmission Date: 20210717
  Serious: Yes (Hospitalization)
  Sender: FDA-Public Use
  Company Number: US-ROCHE-2817094

PATIENT
  Age: 80 Year
  Sex: Male

DRUGS (28)
  1. ESBRIET [Suspect]
     Active Substance: PIRFENIDONE
     Indication: IDIOPATHIC PULMONARY FIBROSIS
     Dosage: 2 TABLET
     Route: 048
     Dates: start: 20200317
  2. FENOFIBRATE. [Concomitant]
     Active Substance: FENOFIBRATE
  3. GABAPENTIN. [Concomitant]
     Active Substance: GABAPENTIN
  4. NOVOLOG [Concomitant]
     Active Substance: INSULIN ASPART
  5. CEPHALEXIN. [Concomitant]
     Active Substance: CEPHALEXIN
  6. TIMOLOL MALEATE. [Concomitant]
     Active Substance: TIMOLOL MALEATE
  7. BENZONATATE. [Concomitant]
     Active Substance: BENZONATATE
  8. CETIRIZINE [Concomitant]
     Active Substance: CETIRIZINE HYDROCHLORIDE
  9. CLOPIDOGREL [Concomitant]
     Active Substance: CLOPIDOGREL BISULFATE
  10. TRIAMCINOLONE [Concomitant]
     Active Substance: TRIAMCINOLONE
  11. VICTOZA [Concomitant]
     Active Substance: LIRAGLUTIDE
  12. FUROSEMIDE. [Concomitant]
     Active Substance: FUROSEMIDE
  13. WARFARIN [Concomitant]
     Active Substance: WARFARIN
  14. AZITHROMYCIN ANHYDROUS. [Concomitant]
     Active Substance: AZITHROMYCIN ANHYDROUS
  15. BEVESPI AEROSPHERE [Concomitant]
     Active Substance: FORMOTEROL FUMARATE\GLYCOPYRROLATE
  16. VITAMIN D3 [Concomitant]
     Active Substance: CHOLECALCIFEROL
  17. METAMUCIL [Concomitant]
     Active Substance: PLANTAGO SEED
  18. PREDNISONE. [Concomitant]
     Active Substance: PREDNISONE
  19. BUMETANIDE. [Concomitant]
     Active Substance: BUMETANIDE
  20. FINASTERIDE. [Concomitant]
     Active Substance: FINASTERIDE
  21. METOLAZONE. [Concomitant]
     Active Substance: METOLAZONE
  22. TAMSULOSIN [Concomitant]
     Active Substance: TAMSULOSIN
  23. ISOSORB MONO [Concomitant]
     Active Substance: ISOSORBIDE MONONITRATE
  24. PANTOPRAZOLE [Concomitant]
     Active Substance: PANTOPRAZOLE
  25. AMLODIPINE [Concomitant]
     Active Substance: AMLODIPINE BESYLATE
  26. CARVEDILOL. [Concomitant]
     Active Substance: CARVEDILOL
  27. LANTUS SOLOSTAR [Concomitant]
     Active Substance: INSULIN GLARGINE
  28. ATORVASTATIN [Concomitant]
     Active Substance: ATORVASTATIN

REACTIONS (1)
  - Lung disorder [Unknown]

NARRATIVE: CASE EVENT DATE: 20210414
